FAERS Safety Report 11073997 (Version 7)
Quarter: 2015Q4

REPORT INFORMATION
  Report Type: Spontaneous
  Country: CA (occurrence: CA)
  Receive Date: 20150429
  Receipt Date: 20151211
  Transmission Date: 20160304
  Serious: Yes (Hospitalization, Other)
  Sender: FDA-Public Use
  Company Number: CA-ROCHE-1570298

PATIENT
  Age: 58 Year
  Sex: Male

DRUGS (5)
  1. ADVAIR HFA [Concomitant]
     Active Substance: FLUTICASONE PROPIONATE\SALMETEROL XINAFOATE
     Dosage: 50/500 UG
     Route: 065
  2. OXEZE [Concomitant]
  3. XOLAIR [Suspect]
     Active Substance: OMALIZUMAB
     Indication: ASTHMA
     Route: 058
     Dates: start: 20150218, end: 20150326
  4. SEEBRI [Suspect]
     Active Substance: GLYCOPYRRONIUM
     Indication: ASTHMA
     Dosage: 1 PUFF
     Route: 055
     Dates: start: 201501
  5. PREDNISONE. [Concomitant]
     Active Substance: PREDNISONE

REACTIONS (9)
  - Myocardial infarction [Recovering/Resolving]
  - Heart rate irregular [Unknown]
  - Lung hyperinflation [Unknown]
  - Obstructive airways disorder [Unknown]
  - Body temperature increased [Unknown]
  - Blood immunoglobulin E increased [Unknown]
  - Feeling abnormal [Unknown]
  - Appendicitis [Unknown]
  - Pericarditis [Unknown]

NARRATIVE: CASE EVENT DATE: 20150126
